FAERS Safety Report 9629900 (Version 4)
Quarter: 2013Q4

REPORT INFORMATION
  Report Type: Spontaneous
  Country: US (occurrence: US)
  Receive Date: 20131017
  Receipt Date: 20131202
  Transmission Date: 20140711
  Serious: Yes (Death, Other)
  Sender: FDA-Public Use
  Company Number: US-GILEAD-2013-0085604

PATIENT
  Age: 82 Year
  Sex: Male
  Weight: 73.47 kg

DRUGS (17)
  1. LETAIRIS [Suspect]
     Indication: PULMONARY HYPERTENSION
     Route: 048
     Dates: start: 20130215
  2. LETAIRIS [Suspect]
     Indication: INTERSTITIAL LUNG DISEASE
  3. LETAIRIS [Suspect]
     Indication: CREST SYNDROME
  4. TRACLEER                           /01587701/ [Concomitant]
  5. SIMVASTATIN [Concomitant]
     Dosage: 20 MG, QD
     Route: 048
  6. SOTALOL [Concomitant]
     Dosage: 80 MG, BID
     Route: 048
  7. TYLENOL                            /00020001/ [Concomitant]
     Dosage: 325 MG, PRN
     Route: 048
  8. VITAMIN B12 + FOLIC ACID [Concomitant]
     Dosage: 500/400, BID
     Route: 048
  9. B3 NIACIN [Concomitant]
     Dosage: 1000 U, QD
     Route: 048
  10. XARELTO [Concomitant]
     Dosage: 15 MG, QD
     Route: 048
  11. SPIRIVA [Concomitant]
     Dosage: 18 ?G, QD
     Route: 055
  12. ADVAIR [Concomitant]
     Dosage: UNK, BID
  13. FLUTICASONE [Concomitant]
  14. LORATADINE [Concomitant]
  15. MUCINEX [Concomitant]
  16. OMEPRAZOLE [Concomitant]
  17. PROAIR                             /00139502/ [Concomitant]

REACTIONS (5)
  - Death [Fatal]
  - Cough [Recovering/Resolving]
  - Productive cough [Recovering/Resolving]
  - Dyspnoea [Recovering/Resolving]
  - Dyspnoea [Recovering/Resolving]
